FAERS Safety Report 21933755 (Version 1)
Quarter: 2023Q1

REPORT INFORMATION
  Report Type: Spontaneous
  Country: US (occurrence: US)
  Receive Date: 20230201
  Receipt Date: 20230201
  Transmission Date: 20230417
  Serious: No
  Sender: FDA-Public Use
  Company Number: ENDG22-04532

PATIENT
  Age: 84 Year
  Sex: Female

DRUGS (1)
  1. METHYLPREDNISOLONE [Suspect]
     Active Substance: METHYLPREDNISOLONE
     Indication: Rash
     Dosage: UNK UNKNOWN, UNKNOWN
     Route: 048
     Dates: start: 20220701, end: 20220706

REACTIONS (4)
  - Heart rate increased [Unknown]
  - Diarrhoea [Unknown]
  - Nasopharyngitis [Unknown]
  - Insomnia [Unknown]

NARRATIVE: CASE EVENT DATE: 20220701
